FAERS Safety Report 9503139 (Version 4)
Quarter: 2014Q1

REPORT INFORMATION
  Report Type: Spontaneous
  Country: US (occurrence: US)
  Receive Date: 20130906
  Receipt Date: 20140103
  Transmission Date: 20141002
  Serious: Yes (Other)
  Sender: FDA-Public Use
  Company Number: US-PFIZER INC-2013255757

PATIENT
  Age: 84 Year
  Sex: Female

DRUGS (1)
  1. XALKORI [Suspect]
     Indication: LUNG NEOPLASM MALIGNANT
     Dosage: 250 MG, 2X/DAY
     Route: 048
     Dates: start: 20130823

REACTIONS (7)
  - Cardiac arrest [Unknown]
  - Blood disorder [Unknown]
  - Nausea [Recovered/Resolved]
  - Pain in extremity [Unknown]
  - Asthenia [Unknown]
  - Insomnia [Unknown]
  - Psychotic disorder [Unknown]
